FAERS Safety Report 9347357 (Version 2)
Quarter: 2013Q2

REPORT INFORMATION
  Report Type: Report from Study
  Country: DE (occurrence: DE)
  Receive Date: 20130613
  Receipt Date: 20130626
  Transmission Date: 20140414
  Serious: Yes (Hospitalization)
  Sender: FDA-Public Use
  Company Number: DE-PFIZER INC-2013172391

PATIENT
  Age: 60 Year
  Sex: Male

DRUGS (3)
  1. REVATIO [Suspect]
     Indication: PORTOPULMONARY HYPERTENSION
     Dosage: 20 MG, 3X/DAY
     Route: 048
  2. LANTUS [Concomitant]
     Indication: DIABETES MELLITUS
     Dosage: 14 IU, 1X/DAY
     Route: 058
     Dates: start: 201304
  3. ACTRAPHANE 30/70 [Concomitant]
     Indication: DIABETES MELLITUS
     Dosage: UNK
     Route: 058
     Dates: start: 201304

REACTIONS (2)
  - Neurological decompensation [Recovering/Resolving]
  - Encephalopathy [Recovering/Resolving]
